FAERS Safety Report 6385230-4 (Version None)
Quarter: 2009Q4

REPORT INFORMATION
  Report Type: 
  Country: None (occurrence: None)
  Receive Date: 20091002
  Receipt Date: 20080728
  Transmission Date: 20100525
  Serious: No
  Sender: FDA-Public Use
  Company Number: US-ASTRAZENECA-2008UW14637

PATIENT
  Age: 62 Year
  Sex: Female
  Weight: 80.7 kg

DRUGS (8)
  1. ARIMIDEX [Suspect]
     Indication: BREAST CANCER FEMALE
     Route: 048
     Dates: start: 20080630
  2. PROTONIX [Concomitant]
  3. NEXIUM [Concomitant]
     Route: 048
  4. RYTHMOL [Concomitant]
  5. METOPROLOL [Concomitant]
     Route: 048
  6. DIGOXIN [Concomitant]
  7. PROZAC [Concomitant]
  8. COUMADIN [Concomitant]
     Dosage: AS DIRECTED

REACTIONS (1)
  - SKIN REACTION [None]
